FAERS Safety Report 6956741-5 (Version None)
Quarter: 2010Q3

REPORT INFORMATION
  Report Type: 
  Country: None (occurrence: None)
  Receive Date: 20100830
  Receipt Date: 20100818
  Transmission Date: 20110219
  Serious: Yes (Other)
  Sender: FDA-Public Use
  Company Number: PHHY2010US54715

PATIENT
  Sex: Female

DRUGS (1)
  1. EXJADE [Suspect]
     Dosage: 500 MG, BID
     Route: 048

REACTIONS (6)
  - CHILLS [None]
  - COUGH [None]
  - FEELING ABNORMAL [None]
  - PNEUMONIA [None]
  - POOR QUALITY SLEEP [None]
  - THROMBOSIS [None]
